FAERS Safety Report 24251708 (Version 1)
Quarter: 2024Q3

REPORT INFORMATION
  Report Type: Spontaneous
  Country: US (occurrence: US)
  Receive Date: 20240827
  Receipt Date: 20240827
  Transmission Date: 20241016
  Serious: No
  Sender: AMGEN
  Company Number: US-AMGEN-USASP2024165696

PATIENT
  Age: 77 Year
  Sex: Female

DRUGS (1)
  1. PROLIA [Suspect]
     Active Substance: DENOSUMAB
     Indication: Product used for unknown indication
     Dosage: UNK, Q6MO
     Route: 058
     Dates: end: 202405

REACTIONS (15)
  - Gait disturbance [Recovering/Resolving]
  - Rhinorrhoea [Recovering/Resolving]
  - Alopecia [Recovering/Resolving]
  - Pruritus [Recovering/Resolving]
  - Weight decreased [Recovering/Resolving]
  - Back pain [Recovering/Resolving]
  - Nausea [Recovered/Resolved]
  - Rash [Recovering/Resolving]
  - Night sweats [Recovering/Resolving]
  - Oropharyngeal pain [Recovering/Resolving]
  - Acne [Recovering/Resolving]
  - Choking sensation [Recovering/Resolving]
  - Dry skin [Recovering/Resolving]
  - Aphonia [Recovering/Resolving]
  - Somnolence [Recovering/Resolving]

NARRATIVE: CASE EVENT DATE: 20240101
